FAERS Safety Report 8574380-X (Version None)
Quarter: 2012Q3

REPORT INFORMATION
  Report Type: 
  Country: None (occurrence: None)
  Receive Date: 20120806
  Receipt Date: 20120727
  Transmission Date: 20120928
  Serious: Yes (Other)
  Sender: FDA-Public Use
  Company Number: US-ELI_LILLY_AND_COMPANY-US201201007070

PATIENT

DRUGS (1)
  1. BYETTA [Suspect]
     Dosage: UNK
     Dates: start: 20100801, end: 20110601

REACTIONS (1)
  - THYROID CANCER [None]
